FAERS Safety Report 15720483 (Version 1)
Quarter: 2018Q4

REPORT INFORMATION
  Report Type: Spontaneous
  Country: CN (occurrence: CN)
  Receive Date: 20181213
  Receipt Date: 20181213
  Transmission Date: 20190205
  Serious: Yes (Other)
  Sender: FDA-Public Use
  Company Number: CN-PFIZER INC-2018493834

PATIENT
  Age: 10 Year
  Sex: Female
  Weight: 40 kg

DRUGS (1)
  1. ZITHROMAX [Suspect]
     Active Substance: AZITHROMYCIN DIHYDRATE
     Indication: THERAPEUTIC PROCEDURE
     Dosage: 0.4 G, 1X/DAY
     Route: 041
     Dates: start: 20180829, end: 20180903

REACTIONS (1)
  - Electrocardiogram PR prolongation [Recovering/Resolving]

NARRATIVE: CASE EVENT DATE: 20180903
